FAERS Safety Report 6976195-2 (Version None)
Quarter: 2010Q3

REPORT INFORMATION
  Report Type: 
  Country: None (occurrence: None)
  Receive Date: 20100910
  Receipt Date: 20100902
  Transmission Date: 20110219
  Serious: Yes (Hospitalization, Other)
  Sender: FDA-Public Use
  Company Number: NL-SANOFI-AVENTIS-2010SA011969

PATIENT
  Age: 77 Year
  Sex: Male
  Weight: 87 kg

DRUGS (10)
  1. AFLIBERCEPT [Suspect]
     Indication: PROSTATE CANCER METASTATIC
     Route: 042
     Dates: start: 20100203, end: 20100203
  2. AFLIBERCEPT [Suspect]
     Route: 042
     Dates: start: 20100223, end: 20100223
  3. DOCETAXEL [Suspect]
     Indication: PROSTATE CANCER METASTATIC
     Route: 042
     Dates: start: 20100223, end: 20100223
  4. DOCETAXEL [Suspect]
     Route: 042
     Dates: start: 20100203, end: 20100203
  5. PREDNISONE [Suspect]
     Indication: PROSTATE CANCER METASTATIC
     Dates: start: 20100203, end: 20100302
  6. ZOLADEX [Concomitant]
     Dates: start: 20020927
  7. PERSANTIN [Concomitant]
     Dates: start: 20050708
  8. ZOCOR [Concomitant]
     Dates: start: 20050708
  9. IMODIUM [Concomitant]
     Dates: start: 20100210, end: 20100211
  10. PROPRANOLOL [Concomitant]
     Dates: start: 20100324

REACTIONS (3)
  - HYPERTHYROIDISM [None]
  - MALAISE [None]
  - MUCOSAL INFLAMMATION [None]
